FAERS Safety Report 19365923 (Version 1)
Quarter: 2021Q2

REPORT INFORMATION
  Report Type: Spontaneous
  Country: US (occurrence: US)
  Receive Date: 20210603
  Receipt Date: 20210603
  Transmission Date: 20210717
  Serious: Yes (Hospitalization)
  Sender: FDA-Public Use
  Company Number: None

PATIENT
  Age: 40 Year
  Sex: Female
  Weight: 77.85 kg

DRUGS (5)
  1. ACETAMINOPHEN 650 MG [Concomitant]
     Active Substance: ACETAMINOPHEN
  2. JARDIANCE [Suspect]
     Active Substance: EMPAGLIFLOZIN
     Indication: TYPE 2 DIABETES MELLITUS
     Route: 048
     Dates: start: 20210420, end: 20210519
  3. GLIMEPIRIDE 2 MG [Concomitant]
     Active Substance: GLIMEPIRIDE
  4. METFORMIN XR 500 MG [Concomitant]
  5. AMLODIPINE 10 MG [Concomitant]
     Active Substance: AMLODIPINE BESYLATE

REACTIONS (2)
  - Adverse drug reaction [None]
  - Status epilepticus [None]

NARRATIVE: CASE EVENT DATE: 20210519
